FAERS Safety Report 12443758 (Version 1)
Quarter: 2016Q2

REPORT INFORMATION
  Report Type: Spontaneous
  Country: ZA (occurrence: ZA)
  Receive Date: 20160607
  Receipt Date: 20160607
  Transmission Date: 20160815
  Serious: Yes (Hospitalization)
  Sender: FDA-Public Use
  Company Number: ZA-MYLANLABS-2016M1022854

PATIENT

DRUGS (14)
  1. LESAMOR [Concomitant]
     Indication: HYPERTENSION
     Dosage: 5 MG, QD
  2. SPIRACTIN                          /00006201/ [Concomitant]
     Indication: HYPERTENSION
     Dosage: 25 MG, QD
  3. SLOW-MAG [Concomitant]
     Active Substance: MAGNESIUM CHLORIDE
     Indication: BLOOD MAGNESIUM DECREASED
     Dosage: 535 MG, QD
  4. MYLACAND PLUS [Suspect]
     Active Substance: CANDESARTAN CILEXETIL\HYDROCHLOROTHIAZIDE
     Indication: HYPERTENSION
     Dosage: 162.5 MG, QD
     Route: 065
  5. ALTOSEC                            /00661201/ [Concomitant]
     Indication: GASTRIC ULCER
     Dosage: 20 MG, UNK
  6. ASPAVOR [Concomitant]
     Active Substance: ATORVASTATIN
     Indication: HYPERCHOLESTEROLAEMIA
     Dosage: 10 MG, QD
  7. IPVENT [Concomitant]
     Indication: BRONCHOSPASM
     Dosage: UNK
  8. TREPILINE                          /00002201/ [Concomitant]
     Active Substance: AMITRIPTYLINE
     Indication: DEPRESSION
     Dosage: 10 MG, UNK
  9. VELTEX [Concomitant]
     Indication: ARTHRITIS
     Dosage: 75 MG, UNK
  10. CELEBREX [Concomitant]
     Active Substance: CELECOXIB
     Indication: INFLAMMATION
     Dosage: 200 MG, UNK
  11. LASIX [Concomitant]
     Active Substance: FUROSEMIDE
     Indication: CARDIAC FAILURE CONGESTIVE
     Dosage: 40 MG, UNK
  12. SYMBICORD [Concomitant]
     Active Substance: BUDESONIDE\FORMOTEROL
     Indication: ASTHMA
     Dosage: UNK
  13. LYRICA [Concomitant]
     Active Substance: PREGABALIN
     Indication: NEUROPATHY PERIPHERAL
     Dosage: 75 MG, UNK
  14. ASPIRIN                            /00002701/ [Concomitant]
     Active Substance: ASPIRIN
     Indication: CARDIAC FAILURE
     Dosage: 100 MG, UNK

REACTIONS (2)
  - Cardiac disorder [Unknown]
  - Fluid overload [Unknown]

NARRATIVE: CASE EVENT DATE: 20141217
